FAERS Safety Report 4648042-5 (Version None)
Quarter: 2005Q2

REPORT INFORMATION
  Report Type: 
  Country: None (occurrence: None)
  Receive Date: 20050331
  Receipt Date: 20050105
  Transmission Date: 20051028
  Serious: No
  Sender: FDA-Public Use
  Company Number: 04P-163-0284862-00

PATIENT
  Age: 47 Year
  Sex: Male
  Weight: 83.0083 kg

DRUGS (8)
  1. HUMIRA [Suspect]
     Indication: RHEUMATOID ARTHRITIS
     Dosage: 40 MG, 1 IN 1 WK, SUBCUTANEOUS; 40 MG, 1 IN 2 WK, SUBCUTANEOUS
     Route: 058
     Dates: start: 20040901, end: 20041201
  2. HUMIRA [Suspect]
     Indication: RHEUMATOID ARTHRITIS
     Dosage: 40 MG, 1 IN 1 WK, SUBCUTANEOUS; 40 MG, 1 IN 2 WK, SUBCUTANEOUS
     Route: 058
     Dates: start: 20041201
  3. LORAZEPAM [Concomitant]
  4. RISEDRONATE SODIUM [Concomitant]
  5. PHENOBARBITAL [Concomitant]
  6. PROCHLORPERAZINE EDISYLATE [Concomitant]
  7. OXYCOCET [Concomitant]
  8. MORPHINE [Concomitant]

REACTIONS (1)
  - HYPOAESTHESIA [None]
